FAERS Safety Report 21103963 (Version 2)
Quarter: 2022Q3

REPORT INFORMATION
  Report Type: Other
  Country: US (occurrence: US)
  Receive Date: 20220720
  Receipt Date: 20220816
  Transmission Date: 20221027
  Serious: Yes (Hospitalization)
  Sender: FDA-Public Use
  Company Number: US-GBT-014293

PATIENT
  Age: 36 Year
  Sex: Female

DRUGS (3)
  1. OXBRYTA [Suspect]
     Active Substance: VOXELOTOR
     Indication: Product used for unknown indication
     Route: 048
     Dates: start: 202206
  2. HYDROXYUREA [Concomitant]
     Active Substance: HYDROXYUREA
     Dosage: 2 PILLS A DAY
  3. ADAKVEO [Concomitant]
     Active Substance: CRIZANLIZUMAB-TMCA

REACTIONS (5)
  - Sickle cell anaemia with crisis [Recovered/Resolved]
  - Splenomegaly [Unknown]
  - Product dose omission issue [Unknown]
  - Off label use [Unknown]
  - Blood potassium decreased [Unknown]

NARRATIVE: CASE EVENT DATE: 20220701
